FAERS Safety Report 19246274 (Version 1)
Quarter: 2021Q2

REPORT INFORMATION
  Report Type: Spontaneous
  Country: IT (occurrence: IT)
  Receive Date: 20210512
  Receipt Date: 20210512
  Transmission Date: 20210717
  Serious: Yes (Hospitalization)
  Sender: FDA-Public Use
  Company Number: IT-AMGEN-ITASP2021070230

PATIENT
  Age: 76 Year
  Sex: Male

DRUGS (8)
  1. TORVAST [Concomitant]
     Active Substance: ATORVASTATIN
     Dosage: UNK
  2. MVASI [Suspect]
     Active Substance: BEVACIZUMAB-AWWB
     Indication: ADENOCARCINOMA OF COLON
     Dosage: 320 MILLIGRAM
     Route: 042
     Dates: start: 20210423, end: 20210423
  3. BISOPROLOL [Concomitant]
     Active Substance: BISOPROLOL
     Dosage: UNK
  4. FLUOROURACILE TEVA [Suspect]
     Active Substance: FLUOROURACIL
     Indication: ADENOCARCINOMA OF COLON
     Dosage: 510 MILLIGRAM (1 G/20 ML)
     Route: 042
     Dates: start: 20210423, end: 20210423
  5. FLUOROURACILE TEVA [Suspect]
     Active Substance: FLUOROURACIL
     Dosage: 3060 MILLIGRAM (5 G/100 ML)
     Route: 042
     Dates: start: 20210423, end: 20210424
  6. COMIRNATY [Suspect]
     Active Substance: TOZINAMERAN
     Indication: COVID-19 IMMUNISATION
     Dosage: 0.3 MILLILITER
     Route: 030
     Dates: start: 20210412, end: 20210412
  7. IRINOTECAN KABI [Suspect]
     Active Substance: IRINOTECAN
     Indication: ADENOCARCINOMA OF COLON
     Dosage: 229.5 MILLIGRAM
     Route: 042
     Dates: start: 20210423, end: 20210423
  8. DUOPLAVIN [Concomitant]
     Active Substance: ASPIRIN\CLOPIDOGREL
     Dosage: UNK

REACTIONS (2)
  - Carotid artery occlusion [Recovering/Resolving]
  - Asthenia [Recovering/Resolving]

NARRATIVE: CASE EVENT DATE: 20210428
